FAERS Safety Report 7294944-3 (Version None)
Quarter: 2011Q1

REPORT INFORMATION
  Report Type: 
  Country: None (occurrence: None)
  Receive Date: 20110207
  Receipt Date: 20110125
  Transmission Date: 20110831
  Serious: Yes (Death, Life-Threatening, Hospitalization, Other)
  Sender: FDA-Public Use
  Company Number: KADN20110001

PATIENT
  Age: 17 Year
  Sex: Male
  Weight: 75 kg

DRUGS (6)
  1. MARIJUANA [Suspect]
     Dosage: PER ORAL
     Route: 048
     Dates: end: 20090101
  2. OLANZAPINE [Concomitant]
  3. MORPHINE [Suspect]
     Dosage: PER ORAL
     Route: 048
     Dates: end: 20090101
  4. QUETIAPINE [Concomitant]
  5. OXCARBAZEPINE [Concomitant]
  6. VITAMIN D [Concomitant]

REACTIONS (17)
  - DRUG ABUSE [None]
  - DRUG SCREEN POSITIVE [None]
  - MYOGLOBIN BLOOD INCREASED [None]
  - ASPARTATE AMINOTRANSFERASE INCREASED [None]
  - CARDIAC ARREST [None]
  - BLOOD PH DECREASED [None]
  - BLOOD UREA INCREASED [None]
  - COMPLETED SUICIDE [None]
  - ALANINE AMINOTRANSFERASE INCREASED [None]
  - PUPIL FIXED [None]
  - BLOOD CREATINE PHOSPHOKINASE INCREASED [None]
  - ELECTROCARDIOGRAM T WAVE PEAKED [None]
  - BLOOD GLUCOSE INCREASED [None]
  - BLOOD POTASSIUM INCREASED [None]
  - BLOOD LACTIC ACID INCREASED [None]
  - AGONAL RHYTHM [None]
  - BLOOD CREATINE INCREASED [None]
